FAERS Safety Report 7044083-1 (Version None)
Quarter: 2010Q4

REPORT INFORMATION
  Report Type: 
  Country: None (occurrence: None)
  Receive Date: 20101013
  Receipt Date: 20101001
  Transmission Date: 20110411
  Serious: Yes (Other)
  Sender: FDA-Public Use
  Company Number: AU-PFIZER INC-2010124493

PATIENT
  Age: 45 Year
  Sex: Female

DRUGS (3)
  1. SYNAREL [Suspect]
     Indication: OFF LABEL USE
     Dosage: UNK
     Dates: end: 20100701
  2. SYNAREL [Suspect]
     Indication: UTERINE LEIOMYOMA
  3. MICARDIS HCT [Concomitant]

REACTIONS (8)
  - ABDOMINAL DISTENSION [None]
  - AMENORRHOEA [None]
  - DEPRESSED MOOD [None]
  - FEELING ABNORMAL [None]
  - HUNGER [None]
  - MALAISE [None]
  - MOOD ALTERED [None]
  - PAIN [None]
